FAERS Safety Report 24902895 (Version 1)
Quarter: 2025Q1

REPORT INFORMATION
  Report Type: Spontaneous
  Country: CA (occurrence: CA)
  Receive Date: 20250130
  Receipt Date: 20250130
  Transmission Date: 20250409
  Serious: Yes (Other)
  Sender: ROCHE
  Company Number: CA-002147023-NVSC2025CA010983

PATIENT
  Age: 48 Year
  Sex: Female

DRUGS (5)
  1. OMALIZUMAB [Suspect]
     Active Substance: OMALIZUMAB
     Indication: Chronic spontaneous urticaria
     Dosage: 300 MG (1 EVERY 4 WEEKS) (473 DAYS)
     Route: 058
  2. OMALIZUMAB [Suspect]
     Active Substance: OMALIZUMAB
     Dosage: 300 MG (1 EVERY 4 WEEKS) (473 DAYS)
     Route: 058
  3. EPIPEN [Concomitant]
     Active Substance: EPINEPHRINE
     Indication: Mite allergy
     Route: 065
  4. EPIPEN [Concomitant]
     Active Substance: EPINEPHRINE
     Indication: Allergy to arthropod sting
  5. Hyderm [Concomitant]
     Indication: Product used for unknown indication
     Route: 065

REACTIONS (11)
  - Acarodermatitis [Recovered/Resolved]
  - Anxiety [Recovered/Resolved]
  - Extrapyramidal disorder [Recovered/Resolved]
  - Injection site pain [Recovered/Resolved]
  - Malaise [Recovered/Resolved]
  - Mental disorder [Recovered/Resolved]
  - Skin atrophy [Recovered/Resolved]
  - Skin disorder [Recovered/Resolved]
  - Skin exfoliation [Recovered/Resolved]
  - Stevens-Johnson syndrome [Recovered/Resolved]
  - Urticaria [Recovered/Resolved]
